FAERS Safety Report 19389504 (Version 1)
Quarter: 2021Q2

REPORT INFORMATION
  Report Type: Spontaneous
  Country: US (occurrence: US)
  Receive Date: 20210608
  Receipt Date: 20210608
  Transmission Date: 20210717
  Serious: No
  Sender: FDA-Public Use
  Company Number: US-009507513-2105USA006512

PATIENT
  Age: 72 Year
  Sex: Female

DRUGS (7)
  1. CALCIUM GLUCONATE. [Concomitant]
     Active Substance: CALCIUM GLUCONATE
     Indication: HAEMODYNAMIC INSTABILITY
  2. CALCIUM CHLORIDE. [Concomitant]
     Active Substance: CALCIUM CHLORIDE
     Indication: HAEMODYNAMIC INSTABILITY
  3. SODIUM BICARBONATE. [Concomitant]
     Active Substance: SODIUM BICARBONATE
     Indication: HAEMODYNAMIC INSTABILITY
  4. PROVENTIL [Suspect]
     Active Substance: ALBUTEROL
     Indication: HAEMODYNAMIC INSTABILITY
     Dosage: UNK
  5. FUROSEMIDE. [Concomitant]
     Active Substance: FUROSEMIDE
     Indication: HAEMODYNAMIC INSTABILITY
  6. POLYSTYRENE SULFONATE CALCIUM [Concomitant]
     Active Substance: CALCIUM POLYSTYRENE SULFONATE
     Indication: HAEMODYNAMIC INSTABILITY
     Dosage: UNK
  7. INSULIN [Concomitant]
     Active Substance: INSULIN NOS
     Indication: HAEMODYNAMIC INSTABILITY

REACTIONS (1)
  - Off label use [Unknown]
